FAERS Safety Report 8216929-2 (Version None)
Quarter: 2012Q1

REPORT INFORMATION
  Report Type: 
  Country: None (occurrence: None)
  Receive Date: 20120318
  Receipt Date: 20120307
  Transmission Date: 20120608
  Serious: Yes (Hospitalization, Other)
  Sender: FDA-Public Use
  Company Number: BR-ROCHE-1001761

PATIENT
  Sex: Female

DRUGS (4)
  1. FLUTICASONE PROPIONATE/SALMETEROL [Concomitant]
     Dosage: 50/500 MG
  2. XOLAIR [Suspect]
     Indication: ASTHMA
     Dates: start: 20100901, end: 20110906
  3. FLUOXIN [Concomitant]
  4. SPIRIVA [Concomitant]

REACTIONS (6)
  - NASOPHARYNGITIS [None]
  - INCORRECT ROUTE OF DRUG ADMINISTRATION [None]
  - PRODUCTIVE COUGH [None]
  - ASTHMA [None]
  - COUGH [None]
  - INJECTION SITE HAEMORRHAGE [None]
